FAERS Safety Report 5375812-0 (Version None)
Quarter: 2007Q3

REPORT INFORMATION
  Report Type: 
  Country: None (occurrence: None)
  Receive Date: 20070702
  Receipt Date: 20070626
  Transmission Date: 20080115
  Serious: Yes (Hospitalization)
  Sender: FDA-Public Use
  Company Number: IT-JNJFOC-20060400648

PATIENT
  Sex: Male
  Weight: 68 kg

DRUGS (5)
  1. REOPRO [Suspect]
     Dosage: 4.0 ML IN 50 ML OF DILUENT AT 3.4 ML/HR  AMOUNT INFUSED WAS UNKNOWN (TOTAL AMOUNT WAS NOT INFUSED)
     Route: 042
  2. REOPRO [Suspect]
     Indication: ACUTE MYOCARDIAL INFARCTION
     Route: 042
  3. RETEPLASE [Suspect]
     Indication: ACUTE MYOCARDIAL INFARCTION
     Route: 042
  4. HEPARIN [Concomitant]
     Route: 042
  5. HEPARIN [Concomitant]
     Route: 042

REACTIONS (3)
  - CORONARY ARTERY DISEASE [None]
  - GASTRITIS EROSIVE [None]
  - GASTROINTESTINAL HAEMORRHAGE [None]
